FAERS Safety Report 21129908 (Version 5)
Quarter: 2022Q3

REPORT INFORMATION
  Report Type: Spontaneous
  Country: US (occurrence: US)
  Receive Date: 20220726
  Receipt Date: 20220916
  Transmission Date: 20221027
  Serious: No
  Sender: FDA-Public Use
  Company Number: US-GILEAD-2022-0590215

PATIENT
  Sex: Female

DRUGS (2)
  1. EPCLUSA [Suspect]
     Active Substance: SOFOSBUVIR\VELPATASVIR
     Indication: Product used for unknown indication
     Dosage: UNK
     Route: 065
     Dates: start: 202206
  2. BACTRIM DS [Concomitant]
     Active Substance: SULFAMETHOXAZOLE\TRIMETHOPRIM

REACTIONS (6)
  - Diarrhoea [Not Recovered/Not Resolved]
  - Swelling [Not Recovered/Not Resolved]
  - Hepatic pain [Not Recovered/Not Resolved]
  - Hepatomegaly [Not Recovered/Not Resolved]
  - Headache [Not Recovered/Not Resolved]
  - Weight increased [Not Recovered/Not Resolved]

NARRATIVE: CASE EVENT DATE: 20220601
